FAERS Safety Report 17242835 (Version 1)
Quarter: 2020Q1

REPORT INFORMATION
  Report Type: Spontaneous
  Country: US (occurrence: US)
  Receive Date: 20200107
  Receipt Date: 20200107
  Transmission Date: 20200409
  Serious: No
  Sender: FDA-Public Use
  Company Number: US-JNJFOC-20191248013

PATIENT
  Sex: Male
  Weight: 68.1 kg

DRUGS (1)
  1. INVEGA SUSTENNA [Suspect]
     Active Substance: PALIPERIDONE PALMITATE
     Indication: PRODUCT USED FOR UNKNOWN INDICATION
     Route: 030
     Dates: start: 201903, end: 201903

REACTIONS (3)
  - Depressive symptom [Not Recovered/Not Resolved]
  - Loss of libido [Not Recovered/Not Resolved]
  - Emotional poverty [Not Recovered/Not Resolved]

NARRATIVE: CASE EVENT DATE: 201904
